FAERS Safety Report 16444895 (Version 3)
Quarter: 2019Q4

REPORT INFORMATION
  Report Type: Report from Study
  Country: JP (occurrence: JP)
  Receive Date: 20190618
  Receipt Date: 20191029
  Transmission Date: 20200122
  Serious: Yes (Death, Hospitalization)
  Sender: FDA-Public Use
  Company Number: JP-ACTELION-A-CH2019-191800

PATIENT
  Age: 68 Year
  Sex: Female

DRUGS (23)
  1. UPTRAVI [Suspect]
     Active Substance: SELEXIPAG
     Indication: PULMONARY ARTERIAL HYPERTENSION
     Dosage: 0.2 MG, BID
     Route: 048
     Dates: start: 20181106, end: 20181107
  2. RISUMIC [Concomitant]
     Active Substance: AMEZINIUM METILSULFATE
  3. TERNELIN [Concomitant]
     Active Substance: TIZANIDINE
  4. OPSUMIT [Suspect]
     Active Substance: MACITENTAN
     Indication: PULMONARY ARTERIAL HYPERTENSION
     Dosage: 5 MG, QD
     Route: 048
     Dates: start: 20170220, end: 20181107
  5. DOPS [Concomitant]
     Active Substance: DROXIDOPA
  6. RIONA [Concomitant]
     Active Substance: FERRIC CITRATE ANHYDROUS
  7. UPTRAVI [Suspect]
     Active Substance: SELEXIPAG
     Dosage: 0.1 MG, BID
     Route: 048
     Dates: start: 20181026
  8. REGPARA [Concomitant]
     Active Substance: CINACALCET HYDROCHLORIDE
  9. ALLEGRA [Concomitant]
     Active Substance: FEXOFENADINE HYDROCHLORIDE
  10. WARFARIN [Concomitant]
     Active Substance: WARFARIN
  11. ACINON [Concomitant]
     Active Substance: NIZATIDINE
  12. PROMAC [Concomitant]
     Active Substance: NITROFURANTOIN
  13. METHYCOBAL [Concomitant]
     Active Substance: METHYLCOBALAMIN
  14. NORVASC [Concomitant]
     Active Substance: AMLODIPINE BESYLATE
  15. RENAGEL [Concomitant]
     Active Substance: SEVELAMER HYDROCHLORIDE
  16. REVATIO [Concomitant]
     Active Substance: SILDENAFIL CITRATE
  17. OXYGEN. [Concomitant]
     Active Substance: OXYGEN
  18. FEBURIC [Concomitant]
     Active Substance: FEBUXOSTAT
  19. SHAKUYAKUKANZOTO [Concomitant]
     Active Substance: HERBALS
  20. MAINTATE [Concomitant]
     Active Substance: BISOPROLOL FUMARATE
  21. OPSUMIT [Suspect]
     Active Substance: MACITENTAN
     Dosage: 10 MG, QD
     Route: 048
     Dates: start: 20181108, end: 20190520
  22. NAUZELIN [Concomitant]
     Active Substance: DOMPERIDONE
  23. FOSRENOL [Concomitant]
     Active Substance: LANTHANUM CARBONATE

REACTIONS (4)
  - Respiratory failure [Fatal]
  - Pneumonia [Fatal]
  - Rash [Recovered/Resolved]
  - Hypoxia [Fatal]

NARRATIVE: CASE EVENT DATE: 20181107
